FAERS Safety Report 9457949 (Version 1)
Quarter: 2013Q3

REPORT INFORMATION
  Report Type: Spontaneous
  Country: PL (occurrence: None)
  Receive Date: 20130809
  Receipt Date: 20130809
  Transmission Date: 20140515
  Serious: Yes (Other)
  Sender: FDA-Public Use
  Company Number: 2013AP007083

PATIENT
  Age: 60 Year
  Sex: Female

DRUGS (2)
  1. CICLOSPORIN (CICLOSPORIN) [Suspect]
     Indication: PSORIASIS
     Route: 048
     Dates: start: 20120521, end: 20121105
  2. METHOTREXATE (METHOTREXATE) [Concomitant]

REACTIONS (3)
  - Labile blood pressure [None]
  - Tremor [None]
  - Anaemia [None]
